FAERS Safety Report 6275879-1 (Version None)
Quarter: 2009Q3

REPORT INFORMATION
  Report Type: 
  Country: None (occurrence: None)
  Receive Date: 20090721
  Receipt Date: 20090715
  Transmission Date: 20100115
  Serious: Yes (Other)
  Sender: FDA-Public Use
  Company Number: GB-MERCK-0907GBR00054

PATIENT
  Age: 64 Year
  Sex: Female
  Weight: 88 kg

DRUGS (11)
  1. JANUVIA [Suspect]
     Indication: DIABETES MELLITUS
     Route: 048
     Dates: start: 20081210, end: 20090615
  2. AMLODIPINE [Concomitant]
     Route: 065
  3. ATENOLOL [Concomitant]
     Route: 065
  4. ATORVASTATIN [Concomitant]
     Route: 065
  5. ACETAMINOPHEN AND CODEINE PHOSPHATE [Concomitant]
     Route: 065
  6. FUROSEMIDE [Concomitant]
     Route: 065
  7. GLICLAZIDE [Concomitant]
     Route: 065
  8. GLUCOSAMINE [Concomitant]
     Route: 065
  9. METFORMIN [Concomitant]
     Route: 065
  10. OMEPRAZOLE [Concomitant]
     Route: 065
  11. PERINDOPRIL [Concomitant]
     Route: 065

REACTIONS (2)
  - RED BLOOD CELL SEDIMENTATION RATE INCREASED [None]
  - VASCULITIC RASH [None]
